FAERS Safety Report 7346963-6 (Version None)
Quarter: 2011Q1

REPORT INFORMATION
  Report Type: 
  Country: None (occurrence: None)
  Receive Date: 20110311
  Receipt Date: 20110215
  Transmission Date: 20110831
  Serious: No
  Sender: FDA-Public Use
  Company Number: US-B.I. PHARMACEUTICALS,INC./RIDGEFIELD-2011-BP-05772BP

PATIENT
  Sex: Female

DRUGS (19)
  1. SIMVASTATIN [Concomitant]
     Indication: BLOOD CHOLESTEROL INCREASED
  2. POTASSIUM [Concomitant]
     Indication: PROPHYLAXIS
  3. FISH OIL [Concomitant]
     Indication: PROPHYLAXIS
  4. FUROSEMIDE [Concomitant]
     Indication: FLUID RETENTION
  5. DIOVAN [Concomitant]
     Indication: CARDIAC DISORDER
  6. LORATADINE [Concomitant]
     Indication: MULTIPLE ALLERGIES
  7. MOVE FREE [Concomitant]
     Indication: PROPHYLAXIS
  8. TYLENOL [Concomitant]
     Indication: ARTHRITIS
  9. LEVOTHYROXINE [Concomitant]
     Indication: HYPOTHYROIDISM
  10. ASPIRIN [Concomitant]
     Indication: PROPHYLAXIS
  11. MULTIVITAMIN [Concomitant]
     Indication: PROPHYLAXIS
  12. CALCIUM [Concomitant]
     Indication: PROPHYLAXIS
  13. SPIRIVA [Suspect]
     Indication: CHRONIC OBSTRUCTIVE PULMONARY DISEASE
     Dosage: 18 MCG
     Route: 055
     Dates: start: 20090101
  14. OMEPRAZOLE [Concomitant]
     Indication: ULCER HAEMORRHAGE
  15. BUDESONIDE [Concomitant]
     Indication: CHRONIC OBSTRUCTIVE PULMONARY DISEASE
  16. FLUTICASONE [Concomitant]
     Indication: CHRONIC OBSTRUCTIVE PULMONARY DISEASE
  17. CARVEDILOL [Concomitant]
     Indication: CARDIAC DISORDER
  18. TRICOR [Concomitant]
     Indication: BLOOD CHOLESTEROL INCREASED
  19. VITAMIN-MINERAL COMPOUND TAB [Concomitant]
     Indication: MACULAR DEGENERATION

REACTIONS (1)
  - PARAESTHESIA [None]
